FAERS Safety Report 7949088-1 (Version None)
Quarter: 2011Q4

REPORT INFORMATION
  Report Type: 
  Country: None (occurrence: None)
  Receive Date: 20111130
  Receipt Date: 20110823
  Transmission Date: 20120403
  Serious: No
  Sender: FDA-Public Use
  Company Number: US-BRISTOL-MYERS SQUIBB COMPANY-15961667

PATIENT
  Age: 50 Year
  Sex: Female

DRUGS (2)
  1. LISINOPRIL [Suspect]
  2. KOMBIGLYZE XR [Suspect]
     Dosage: 1 DF: 2.5/1000MG

REACTIONS (3)
  - LIP SWELLING [None]
  - URTICARIA [None]
  - RASH [None]
